FAERS Safety Report 24692318 (Version 2)
Quarter: 2024Q4

REPORT INFORMATION
  Report Type: Report from Study
  Country: EG (occurrence: EG)
  Receive Date: 20241203
  Receipt Date: 20241205
  Transmission Date: 20250115
  Serious: Yes (Disabling, Other)
  Sender: NOVARTIS
  Company Number: EG-002147023-NVSC2024EG230075

PATIENT
  Age: 49 Year
  Sex: Female
  Weight: 50 kg

DRUGS (3)
  1. GILENYA [Suspect]
     Active Substance: FINGOLIMOD HYDROCHLORIDE
     Indication: Multiple sclerosis
     Dosage: 0.5 MG, QD
     Route: 048
     Dates: start: 202203
  2. BETAFERON [Concomitant]
     Active Substance: INTERFERON BETA-1B
     Indication: Multiple sclerosis
     Dosage: 250 UG, TIW (4-5 YEARS AGO) END DATE: 2 YEARS AFTER START DATE (SOLUTION FOR INJECTION)
     Route: 058
  3. MABTHERA [Concomitant]
     Active Substance: RITUXIMAB
     Indication: Multiple sclerosis
     Dosage: UNK (2 MONTHS AGO) (ONE VIAL EVERY 6 MONTHS) SOLUTION FOR INFUSION
     Route: 042

REACTIONS (9)
  - Immunodeficiency [Not Recovered/Not Resolved]
  - Gait disturbance [Not Recovered/Not Resolved]
  - Limb discomfort [Not Recovered/Not Resolved]
  - Fatigue [Recovering/Resolving]
  - Dizziness [Not Recovered/Not Resolved]
  - Balance disorder [Not Recovered/Not Resolved]
  - White blood cell count decreased [Unknown]
  - Amnesia [Not Recovered/Not Resolved]
  - Condition aggravated [Not Recovered/Not Resolved]

NARRATIVE: CASE EVENT DATE: 20230101
